FAERS Safety Report 4726669-X (Version None)
Quarter: 2005Q3

REPORT INFORMATION
  Report Type: 
  Country: None (occurrence: None)
  Receive Date: 20050727
  Receipt Date: 20050616
  Transmission Date: 20060218
  Serious: Yes (Death, Hospitalization)
  Sender: FDA-Public Use
  Company Number: BE-MERCK-0506BEL00029

PATIENT
  Age: 84 Year
  Sex: Female
  Weight: 50 kg

DRUGS (6)
  1. FOSAMAX [Suspect]
     Indication: OSTEOPOROSIS
     Route: 048
     Dates: start: 20041210, end: 20050222
  2. NITROGLYCERIN [Concomitant]
     Indication: ANGINA PECTORIS
     Route: 061
     Dates: start: 20000101, end: 20050222
  3. MOLSIDOMINE [Concomitant]
     Indication: ANGINA PECTORIS
     Route: 048
     Dates: start: 20020101, end: 20050222
  4. DIOSMIN AND HESPERIDIN [Concomitant]
     Indication: VENOUS INSUFFICIENCY
     Route: 048
     Dates: start: 19800101, end: 20050222
  5. PANTOPRAZOLE [Concomitant]
     Indication: OESOPHAGITIS
     Route: 048
     Dates: start: 20040101, end: 20050222
  6. BUPRENORPHINE HYDROCHLORIDE [Concomitant]
     Indication: SPINAL FRACTURE
     Route: 061
     Dates: start: 20050101, end: 20050222

REACTIONS (3)
  - CEREBROVASCULAR ACCIDENT [None]
  - DEHYDRATION [None]
  - PNEUMONIA PNEUMOCOCCAL [None]
